FAERS Safety Report 25536283 (Version 1)
Quarter: 2025Q3

REPORT INFORMATION
  Report Type: Report from Study
  Country: US (occurrence: US)
  Receive Date: 20250709
  Receipt Date: 20250709
  Transmission Date: 20251020
  Serious: No
  Sender: TG THERAPEUTICS
  Company Number: US-TG THERAPEUTICS INC.-TGT005236

PATIENT

DRUGS (9)
  1. UBLITUXIMAB [Suspect]
     Active Substance: UBLITUXIMAB
     Indication: Multiple sclerosis
     Route: 042
     Dates: start: 20241205, end: 20241205
  2. UBLITUXIMAB [Suspect]
     Active Substance: UBLITUXIMAB
     Route: 042
     Dates: start: 20240625, end: 20240625
  3. UBLITUXIMAB [Suspect]
     Active Substance: UBLITUXIMAB
     Route: 042
     Dates: start: 20241219, end: 20241219
  4. UBLITUXIMAB [Suspect]
     Active Substance: UBLITUXIMAB
     Route: 042
     Dates: start: 20250529, end: 20250529
  5. SOLU-MEDROL [Concomitant]
     Active Substance: METHYLPREDNISOLONE SODIUM SUCCINATE
     Indication: Premedication
     Route: 042
     Dates: start: 20250529, end: 20250529
  6. BENADRYL [Concomitant]
     Active Substance: DIPHENHYDRAMINE HYDROCHLORIDE
     Indication: Premedication
     Dates: start: 20250529, end: 20250529
  7. INSULIN NOS [Concomitant]
     Active Substance: INSULIN NOS
     Indication: Type 1 diabetes mellitus
  8. PRAVASTATIN [Concomitant]
     Active Substance: PRAVASTATIN
     Indication: Blood cholesterol increased
     Dosage: 40 MILLIGRAM, QD
  9. NOVOLOG [Concomitant]
     Active Substance: INSULIN ASPART

REACTIONS (7)
  - Infusion related reaction [Unknown]
  - Dyspnoea [Unknown]
  - Disorientation [Unknown]
  - Amnesia [Recovered/Resolved]
  - Muscular weakness [Unknown]
  - Malaise [Recovering/Resolving]
  - Muscle spasms [Unknown]

NARRATIVE: CASE EVENT DATE: 20250101
